FAERS Safety Report 10038858 (Version 2)
Quarter: 2014Q2

REPORT INFORMATION
  Report Type: Report from Study
  Country: RU (occurrence: RU)
  Receive Date: 20140326
  Receipt Date: 20140520
  Transmission Date: 20141212
  Serious: Yes (Life-Threatening, Hospitalization)
  Sender: FDA-Public Use
  Company Number: RU-VERTEX PHARMACEUTICALS INC-2014-001564

PATIENT
  Age: 54 Year
  Sex: Female

DRUGS (20)
  1. VX-950 (TELAPREVIR) [Suspect]
     Indication: CHRONIC HEPATITIS C
     Dosage: 2250 MG, QD
     Route: 048
     Dates: start: 20131010, end: 20131209
  2. Z-RIBAVIRIN [Suspect]
     Indication: CHRONIC HEPATITIS C
     Dosage: UNK
     Route: 048
     Dates: start: 20131224
  3. Z-RIBAVIRIN [Suspect]
     Dosage: 1000 MG, QD
     Route: 048
     Dates: start: 20131010, end: 20131209
  4. PEGINTERFERON LAMBDA-1A [Suspect]
     Indication: CHRONIC HEPATITIS C
     Dosage: UNK
     Dates: start: 20131224
  5. PEGINTERFERON LAMBDA-1A [Suspect]
     Dosage: 180 ?G, QW
     Route: 058
     Dates: start: 20131010, end: 20131205
  6. Z-PEGYLATED INTERFERON-2A [Suspect]
     Indication: CHRONIC HEPATITIS C
     Dosage: UNK
     Route: 058
     Dates: start: 20131224
  7. Z-PEGYLATED INTERFERON-2A [Suspect]
     Dosage: 180 ?G, QW
     Route: 058
     Dates: start: 20131010, end: 20131205
  8. BISOPROLOL [Concomitant]
     Dates: start: 20131024
  9. PAPAVERINE [Concomitant]
  10. METRONIDAZOLE [Concomitant]
  11. SODIUM CHLORIDE [Concomitant]
  12. ALMAGEL [Concomitant]
  13. POTASSIUM CHLORIDE [Concomitant]
  14. MAGNESIUM SULFATE [Concomitant]
  15. PLATYPHYLLINE [Concomitant]
  16. OMEPRAZOLE [Concomitant]
  17. AMOXICILLIN [Concomitant]
  18. ORNITHINE [Concomitant]
  19. GLUCOSE [Concomitant]
  20. INSULIN [Concomitant]

REACTIONS (1)
  - Jaundice cholestatic [Recovered/Resolved]
